FAERS Safety Report 8916629 (Version 3)
Quarter: 2012Q4

REPORT INFORMATION
  Report Type: Report from Study
  Country: HU (occurrence: HU)
  Receive Date: 20121120
  Receipt Date: 20121226
  Transmission Date: 20130627
  Serious: Yes (Death, Other)
  Sender: FDA-Public Use
  Company Number: HU-ROCHE-1157355

PATIENT
  Sex: Male

DRUGS (3)
  1. CAPECITABINE [Suspect]
     Indication: PRODUCT USED FOR UNKNOWN INDICATION
     Route: 048
     Dates: start: 20121112
  2. CAPECITABINE [Suspect]
     Route: 065
     Dates: end: 20121218
  3. CISPLATIN [Concomitant]

REACTIONS (7)
  - Asthenia [Fatal]
  - Blood pressure fluctuation [Unknown]
  - Nausea [Recovering/Resolving]
  - Vomiting [Recovered/Resolved]
  - Decreased appetite [Unknown]
  - Oedema peripheral [Unknown]
  - Constipation [Unknown]
